FAERS Safety Report 24709830 (Version 5)
Quarter: 2025Q2

REPORT INFORMATION
  Report Type: Spontaneous
  Country: US (occurrence: US)
  Receive Date: 20241209
  Receipt Date: 20250409
  Transmission Date: 20250717
  Serious: No
  Sender: JOHNSON AND JOHNSON
  Company Number: US-JNJFOC-20241133351

PATIENT
  Age: 60 Year
  Sex: Male

DRUGS (2)
  1. TREMFYA [Suspect]
     Active Substance: GUSELKUMAB
     Indication: Psoriasis
     Route: 058
  2. TREMFYA [Suspect]
     Active Substance: GUSELKUMAB
     Route: 058

REACTIONS (22)
  - Needle issue [Unknown]
  - Product dose omission issue [Unknown]
  - Injection site haemorrhage [Unknown]
  - Needle issue [Unknown]
  - Device defective [Unknown]
  - Device malfunction [Unknown]
  - Hypoaesthesia [Unknown]
  - Paranoia [Unknown]
  - Illness [Unknown]
  - Overdose [Unknown]
  - Drug hypersensitivity [Unknown]
  - Vomiting [Unknown]
  - Therapeutic product effect decreased [Unknown]
  - Psoriasis [Unknown]
  - Weight decreased [Unknown]
  - Abdominal discomfort [Unknown]
  - Oral pain [Unknown]
  - Denture wearer [Unknown]
  - Oral infection [Unknown]
  - Hypoaesthesia oral [Unknown]
  - Polydipsia [Unknown]
  - Cough [Unknown]

NARRATIVE: CASE EVENT DATE: 20241201
